FAERS Safety Report 7964201-8 (Version None)
Quarter: 2011Q4

REPORT INFORMATION
  Report Type: 
  Country: None (occurrence: None)
  Receive Date: 20111208
  Receipt Date: 20111129
  Transmission Date: 20120403
  Serious: Yes (Hospitalization)
  Sender: FDA-Public Use
  Company Number: US-US-EMD SERONO, INC.-7099185

PATIENT
  Sex: Female
  Weight: 83 kg

DRUGS (3)
  1. COUMADIN [Suspect]
     Indication: CARDIAC OPERATION
  2. REBIF [Suspect]
     Indication: MULTIPLE SCLEROSIS
     Route: 058
     Dates: start: 20110518
  3. UNSPECIFIED MEDICATIONS (TOO MANY TO LIST) [Concomitant]

REACTIONS (4)
  - ASTHENIA [None]
  - PAIN [None]
  - MALAISE [None]
  - INTERNATIONAL NORMALISED RATIO DECREASED [None]
